FAERS Safety Report 10755970 (Version 4)
Quarter: 2015Q4

REPORT INFORMATION
  Report Type: Report from Study
  Country: DE (occurrence: DE)
  Receive Date: 20150202
  Receipt Date: 20151019
  Transmission Date: 20160304
  Serious: Yes (Other)
  Sender: FDA-Public Use
  Company Number: DE-SA-2014SA144219

PATIENT
  Age: 45 Year
  Sex: Female

DRUGS (4)
  1. RAMIPRIL. [Concomitant]
     Active Substance: RAMIPRIL
     Indication: HYPERTENSION
     Route: 048
  2. BISOPROLOL [Concomitant]
     Active Substance: BISOPROLOL
     Indication: HYPERTENSION
     Route: 048
  3. AUBAGIO [Suspect]
     Active Substance: TERIFLUNOMIDE
     Indication: MULTIPLE SCLEROSIS
     Route: 048
     Dates: start: 20141006
  4. DOXAZOSIN [Concomitant]
     Active Substance: DOXAZOSIN\DOXAZOSIN MESYLATE
     Indication: HYPERTENSION
     Dosage: DOSE: 1 TABLET IN THE EVENING
     Route: 048

REACTIONS (13)
  - Pain [Unknown]
  - Nail discolouration [Unknown]
  - Headache [Unknown]
  - Nail injury [Unknown]
  - Throat irritation [Unknown]
  - Inflammation [Unknown]
  - Fall [Unknown]
  - Leiomyoma [Unknown]
  - Contusion [Unknown]
  - Rhinorrhoea [Not Recovered/Not Resolved]
  - Hypertension [Unknown]
  - Vaginal infection [Unknown]
  - Nasopharyngitis [Unknown]

NARRATIVE: CASE EVENT DATE: 20141016
